FAERS Safety Report 7593316-1 (Version None)
Quarter: 2011Q3

REPORT INFORMATION
  Report Type: 
  Country: None (occurrence: None)
  Receive Date: 20110706
  Receipt Date: 20101116
  Transmission Date: 20111222
  Serious: Yes (Other)
  Sender: FDA-Public Use
  Company Number: US-BAYER-200934593NA

PATIENT
  Age: 51 Year
  Sex: Female
  Weight: 104.31 kg

DRUGS (29)
  1. HEPARIN [Concomitant]
     Route: 042
  2. REGULAR INSULIN [Concomitant]
     Dosage: 5 U, UNK
     Route: 042
     Dates: start: 20050104
  3. RANITIDINE [Concomitant]
     Dosage: 50 MG, UNK
     Route: 042
     Dates: start: 20050104
  4. TRASYLOL [Suspect]
     Dosage: 200 ML, UNK, LOADING DOSE
     Route: 042
     Dates: start: 20050104, end: 20050104
  5. FRESH FROZEN PLASMA [Concomitant]
     Dosage: 1 U, UNK
     Route: 042
     Dates: start: 20050104
  6. ROCURONIUM BROMIDE [Concomitant]
     Dosage: UNK
     Route: 042
     Dates: start: 20050104
  7. MILRINONE [Concomitant]
     Dosage: UNK
     Route: 042
     Dates: start: 20050104
  8. TRASYLOL [Suspect]
     Indication: CORONARY ARTERY BYPASS
     Dosage: 200 ML, UNK, PRIME
     Route: 042
     Dates: start: 20050104, end: 20050104
  9. NPH INSULIN [Concomitant]
  10. BISOPROLOL FUMARATE [Concomitant]
  11. FENTANYL [Concomitant]
     Route: 042
  12. VERSED [Concomitant]
     Route: 042
  13. MAGNESIUM SULFATE [Concomitant]
     Dosage: 2 G, UNK
     Route: 042
     Dates: start: 20050104
  14. LASIX [Concomitant]
  15. ANCEF [Concomitant]
     Route: 042
  16. EPINEPHRINE [Concomitant]
     Dosage: UNK
     Route: 042
     Dates: start: 20050104
  17. TRASYLOL [Suspect]
     Dosage: 50 ML, Q1HR
     Route: 042
     Dates: start: 20050104, end: 20050104
  18. LASIX [Concomitant]
     Route: 042
  19. ACETYLSALICYLIC ACID SRT [Concomitant]
  20. DOPAMINE HCL [Concomitant]
     Dosage: UNK
     Route: 042
  21. PROTAMINE SULFATE [Concomitant]
     Dosage: UNK
     Route: 042
     Dates: start: 20050104
  22. PROZAC [Concomitant]
  23. BENADRYL [Concomitant]
     Dosage: 50 MG, UNK
     Route: 042
     Dates: start: 20050104
  24. METFORMIN HCL [Concomitant]
  25. NEURONTIN [Concomitant]
  26. NITROGLYCERIN [Concomitant]
     Route: 042
  27. RED BLOOD CELLS [Concomitant]
     Dosage: 9 U, UNK
     Route: 042
     Dates: start: 20050104
  28. PLATELETS [Concomitant]
     Dosage: UNK
     Route: 042
     Dates: start: 20050104
  29. ETOMIDATE [Concomitant]
     Dosage: UNK
     Route: 042
     Dates: start: 20050104

REACTIONS (5)
  - UNEVALUABLE EVENT [None]
  - RENAL FAILURE [None]
  - RENAL FAILURE ACUTE [None]
  - PAIN [None]
  - INJURY [None]
